FAERS Safety Report 5243833-4 (Version None)
Quarter: 2007Q1

REPORT INFORMATION
  Report Type: 
  Country: None (occurrence: None)
  Receive Date: 20070222
  Receipt Date: 20070212
  Transmission Date: 20070707
  Serious: Yes (Disabling, Other)
  Sender: FDA-Public Use
  Company Number: DE-PFIZER INC-2007003637

PATIENT
  Sex: Female
  Weight: 15.2 kg

DRUGS (9)
  1. GENOTROPIN [Suspect]
     Indication: GROWTH HORMONE DEFICIENCY
     Route: 058
  2. SODIUM BICARBONATE [Concomitant]
  3. ROCALTROL [Concomitant]
  4. FERRO SANOL [Concomitant]
  5. CALCIUM CARBONATE [Concomitant]
  6. DREISAVIT N [Concomitant]
  7. CEFACLOR [Concomitant]
  8. EPOETIN BETA [Concomitant]
  9. MOVICOL [Concomitant]

REACTIONS (3)
  - FATIGUE [None]
  - GAIT DISTURBANCE [None]
  - RENAL FAILURE CHRONIC [None]
